FAERS Safety Report 9287680 (Version 1)
Quarter: 2013Q2

REPORT INFORMATION
  Report Type: Spontaneous
  Country: US (occurrence: US)
  Receive Date: 20130514
  Receipt Date: 20130514
  Transmission Date: 20140414
  Serious: Yes (Hospitalization)
  Sender: FDA-Public Use
  Company Number: US-ROXANE LABORATORIES, INC.-2013-RO-00720RO

PATIENT
  Age: 39 Year
  Sex: Female

DRUGS (5)
  1. CLOPIDOGREL [Suspect]
     Indication: CORONARY ARTERY DISEASE
     Dosage: 75 MG
  2. SIMVASTATIN [Suspect]
     Dosage: 20 MG
  3. HYDROCHLOROTHIAZIDE [Concomitant]
  4. FAMOTIDINE [Concomitant]
  5. ASPIRIN [Concomitant]

REACTIONS (3)
  - Drug-induced liver injury [Recovered/Resolved]
  - Hepatitis [Unknown]
  - Cholestasis [Unknown]
